FAERS Safety Report 4661441-0 (Version None)
Quarter: 2005Q2

REPORT INFORMATION
  Report Type: 
  Country: None (occurrence: None)
  Receive Date: 20050511
  Receipt Date: 20050511
  Transmission Date: 20051028
  Serious: No
  Sender: FDA-Public Use
  Company Number: None

PATIENT
  Age: 59 Year
  Sex: Male

DRUGS (1)
  1. HEPARIN [Suspect]

REACTIONS (4)
  - ACTIVATED PARTIAL THROMBOPLASTIN TIME PROLONGED [None]
  - HAEMORRHAGE [None]
  - LABORATORY TEST INTERFERENCE [None]
  - SUBDURAL HAEMATOMA [None]
